FAERS Safety Report 8104523-3 (Version None)
Quarter: 2012Q1

REPORT INFORMATION
  Report Type: 
  Country: None (occurrence: None)
  Receive Date: 20120201
  Receipt Date: 20120131
  Transmission Date: 20120608
  Serious: Yes (Other)
  Sender: FDA-Public Use
  Company Number: US-BAYER-2011-116251

PATIENT
  Age: 54 Year
  Sex: Female
  Weight: 91 kg

DRUGS (10)
  1. VESICARE [Concomitant]
     Dosage: 10 MG, QD
  2. ADDERALL XR 10 [Concomitant]
     Dosage: 15 MG, UNK
  3. BETASERON [Suspect]
     Indication: RELAPSING-REMITTING MULTIPLE SCLEROSIS
     Dosage: UNK
     Dates: start: 19940412, end: 20070401
  4. HYZAAR [Concomitant]
  5. SYNTHROID [Concomitant]
  6. BACLOFEN [Concomitant]
     Indication: MUSCLE SPASTICITY
  7. BETASERON [Suspect]
     Dosage: 8 MIU, QOD
     Route: 058
     Dates: start: 20090525
  8. LIPITOR [Concomitant]
  9. LEXAPRO [Concomitant]
     Dosage: 10 MG, QD
  10. ACETYLSALICYLIC ACID SRT [Concomitant]
     Dosage: 81 MG, QD

REACTIONS (7)
  - SKIN WARM [None]
  - INJECTION SITE SCAB [None]
  - INJECTION SITE ERYTHEMA [None]
  - INJECTION SITE INFECTION [None]
  - ERYTHEMA [None]
  - SCAB [None]
  - INJECTION SITE WARMTH [None]
